FAERS Safety Report 14344887 (Version 1)
Quarter: 2018Q1

REPORT INFORMATION
  Report Type: Spontaneous
  Country: FR (occurrence: FR)
  Receive Date: 20180103
  Receipt Date: 20180103
  Transmission Date: 20180509
  Serious: Yes (Other)
  Sender: FDA-Public Use
  Company Number: FR-ROCHE-2047003

PATIENT
  Age: 60 Year
  Sex: Male

DRUGS (2)
  1. ROACTEMRA [Suspect]
     Active Substance: TOCILIZUMAB
     Indication: KARYOTYPE ANALYSIS ABNORMAL
  2. ROACTEMRA [Suspect]
     Active Substance: TOCILIZUMAB
     Indication: AUTOINFLAMMATORY DISEASE
     Route: 042

REACTIONS (5)
  - Off label use [Unknown]
  - Intentional product use issue [Unknown]
  - Pyrexia [Recovering/Resolving]
  - Shock [Recovering/Resolving]
  - Pancytopenia [Recovering/Resolving]
